FAERS Safety Report 16597483 (Version 6)
Quarter: 2021Q3

REPORT INFORMATION
  Report Type: Spontaneous
  Country: US (occurrence: US)
  Receive Date: 20190719
  Receipt Date: 20210701
  Transmission Date: 20211014
  Serious: Yes (Other)
  Sender: FDA-Public Use
  Company Number: US-GILEAD-2019-0418455

PATIENT
  Age: 52 Year
  Sex: Male

DRUGS (60)
  1. VITAMIN D3 [Concomitant]
     Active Substance: CHOLECALCIFEROL
  2. CELECOXIB. [Concomitant]
     Active Substance: CELECOXIB
  3. LOSARTAN. [Concomitant]
     Active Substance: LOSARTAN
  4. LINZESS [Concomitant]
     Active Substance: LINACLOTIDE
  5. PRAVASTATIN. [Concomitant]
     Active Substance: PRAVASTATIN
  6. TETRACYCLINE [Concomitant]
     Active Substance: TETRACYCLINE
  7. CLINDAMYCIN. [Concomitant]
     Active Substance: CLINDAMYCIN
  8. NICOTINE TRANSDERMAL SYSTEM [Concomitant]
     Active Substance: NICOTINE
  9. AZITHROMYCIN ANHYDROUS. [Concomitant]
     Active Substance: AZITHROMYCIN ANHYDROUS
  10. NORTRIPTYLIN [Concomitant]
     Active Substance: NORTRIPTYLINE
  11. AMLODIPINE [Concomitant]
     Active Substance: AMLODIPINE BESYLATE
  12. NASOCORT [Concomitant]
     Active Substance: BUDESONIDE
  13. NORVIR [Concomitant]
     Active Substance: RITONAVIR
  14. COMPAZINE [Concomitant]
     Active Substance: PROCHLORPERAZINE MALEATE
  15. BENADRYL [Concomitant]
     Active Substance: DIPHENHYDRAMINE HYDROCHLORIDE
  16. ASPIRINE [Concomitant]
     Active Substance: ASPIRIN
  17. METHYLPREDNISOLONE. [Concomitant]
     Active Substance: METHYLPREDNISOLONE
  18. VITAMIN B12 [Concomitant]
     Active Substance: CYANOCOBALAMIN
  19. ALBUTEROL [SALBUTAMOL SULFATE] [Concomitant]
     Active Substance: ALBUTEROL SULFATE
  20. BISACODYL. [Concomitant]
     Active Substance: BISACODYL
  21. AZELASTINE. [Concomitant]
     Active Substance: AZELASTINE HYDROCHLORIDE
  22. ATRIPLA [Suspect]
     Active Substance: EFAVIRENZ\EMTRICITABINE\TENOFOVIR DISOPROXIL FUMARATE
     Indication: HIV INFECTION
     Dosage: UNK
     Route: 048
     Dates: start: 20081122, end: 20130725
  23. PERCOCET [Concomitant]
     Active Substance: ACETAMINOPHEN\OXYCODONE HYDROCHLORIDE
  24. ACETAMINOPHEN. [Concomitant]
     Active Substance: ACETAMINOPHEN
  25. FLEET [GLYCEROL] [Concomitant]
  26. CEFUROXIME. [Concomitant]
     Active Substance: CEFUROXIME
  27. VITAMIN E [Concomitant]
     Active Substance: .ALPHA.-TOCOPHEROL
  28. TRUVADA [Suspect]
     Active Substance: EMTRICITABINE\TENOFOVIR DISOPROXIL FUMARATE
     Indication: HIV INFECTION
     Dosage: UNK
     Route: 048
     Dates: start: 2004, end: 2013
  29. TRUVADA [Suspect]
     Active Substance: EMTRICITABINE\TENOFOVIR DISOPROXIL FUMARATE
     Dosage: UNK
     Route: 048
     Dates: start: 2004, end: 20140113
  30. COMPAZINE [Concomitant]
     Active Substance: PROCHLORPERAZINE MALEATE
  31. LOVENOX [LEVOFLOXACIN] [Concomitant]
     Active Substance: LEVOFLOXACIN
  32. PAROXETINE. [Concomitant]
     Active Substance: PAROXETINE
  33. EPIVIR [Concomitant]
     Active Substance: LAMIVUDINE
  34. PROCHLORPERAZINE. [Concomitant]
     Active Substance: PROCHLORPERAZINE
  35. HYDROXYZINE HCL [Concomitant]
     Active Substance: HYDROXYZINE HYDROCHLORIDE
  36. ATRIPLA [Suspect]
     Active Substance: EFAVIRENZ\EMTRICITABINE\TENOFOVIR DISOPROXIL FUMARATE
     Dosage: UNK
     Route: 048
     Dates: start: 20081121, end: 20130625
  37. STRIBILD [Suspect]
     Active Substance: COBICISTAT\ELVITEGRAVIR\EMTRICITABINE\TENOFOVIR DISOPROXIL FUMARATE
     Dosage: UNK
     Route: 048
     Dates: start: 20130910, end: 20151212
  38. TUMS [Concomitant]
     Active Substance: CALCIUM CARBONATE
  39. ZYRTEC [Concomitant]
     Active Substance: CETIRIZINE HYDROCHLORIDE
  40. COENZYME Q10 [Concomitant]
     Active Substance: DIETARY SUPPLEMENT\UBIDECARENONE
  41. ACYCLOVIR [ACICLOVIR SODIUM] [Concomitant]
     Active Substance: ACYCLOVIR
  42. BACTRIM [Concomitant]
     Active Substance: SULFAMETHOXAZOLE\TRIMETHOPRIM
  43. FEXOFENADINE [Concomitant]
     Active Substance: FEXOFENADINE HYDROCHLORIDE
  44. ONDANSETRON [Concomitant]
     Active Substance: ONDANSETRON
  45. FLUCONAZOLE. [Concomitant]
     Active Substance: FLUCONAZOLE
  46. STRIBILD [Suspect]
     Active Substance: COBICISTAT\ELVITEGRAVIR\EMTRICITABINE\TENOFOVIR DISOPROXIL FUMARATE
     Indication: HIV INFECTION
     Dosage: UNK
     Route: 048
     Dates: start: 20130925, end: 20161214
  47. TYMLOS [Concomitant]
     Active Substance: ABALOPARATIDE
  48. PIROXICAM. [Concomitant]
     Active Substance: PIROXICAM
  49. HYDROCORTISONE. [Concomitant]
     Active Substance: HYDROCORTISONE
  50. AMOXICILLIN. [Concomitant]
     Active Substance: AMOXICILLIN
  51. CETIRIZINE [Concomitant]
     Active Substance: CETIRIZINE HYDROCHLORIDE
  52. DICYCLOMINE [Concomitant]
     Active Substance: DICYCLOMINE HYDROCHLORIDE
  53. TERBINAFINE. [Concomitant]
     Active Substance: TERBINAFINE
  54. GENVOYA [Concomitant]
     Active Substance: COBICISTAT\ELVITEGRAVIR\EMTRICITABINE\TENOFOVIR ALAFENAMIDE FUMARATE
  55. PREDNISONE. [Concomitant]
     Active Substance: PREDNISONE
  56. REYATAZ [Concomitant]
     Active Substance: ATAZANAVIR SULFATE
  57. SUSTIVA [Concomitant]
     Active Substance: EFAVIRENZ
  58. VALTREX [Concomitant]
     Active Substance: VALACYCLOVIR HYDROCHLORIDE
  59. NYSTATIN. [Concomitant]
     Active Substance: NYSTATIN
  60. GAVILYTE G [Concomitant]
     Active Substance: POLYETHYLENE GLYCOL 3350\POTASSIUM CHLORIDE\SODIUM BICARBONATE\SODIUM CHLORIDE\SODIUM SULFATE

REACTIONS (26)
  - Pain [Not Recovered/Not Resolved]
  - Drug ineffective [Unknown]
  - Intervertebral disc operation [Not Recovered/Not Resolved]
  - Spinal stenosis [Unknown]
  - Anxiety [Not Recovered/Not Resolved]
  - Cervical radiculopathy [Unknown]
  - Mobility decreased [Unknown]
  - Spinal osteoarthritis [Unknown]
  - Osteonecrosis [Not Recovered/Not Resolved]
  - Osteopenia [Not Recovered/Not Resolved]
  - Spinal column injury [Unknown]
  - Depression [Not Recovered/Not Resolved]
  - Pathological fracture [Unknown]
  - Multiple fractures [Not Recovered/Not Resolved]
  - Osteoporotic fracture [Unknown]
  - Hip fracture [Unknown]
  - Cervical spinal stenosis [Unknown]
  - Arthritis [Unknown]
  - Emotional distress [Not Recovered/Not Resolved]
  - Economic problem [Not Recovered/Not Resolved]
  - Back pain [Unknown]
  - Intervertebral disc degeneration [Unknown]
  - Sacroiliac joint dysfunction [Unknown]
  - Bone density decreased [Not Recovered/Not Resolved]
  - Bone loss [Not Recovered/Not Resolved]
  - Anhedonia [Not Recovered/Not Resolved]

NARRATIVE: CASE EVENT DATE: 2008
